FAERS Safety Report 13256237 (Version 2)
Quarter: 2017Q1

REPORT INFORMATION
  Report Type: Report from Study
  Country: US (occurrence: US)
  Receive Date: 20170221
  Receipt Date: 20170301
  Transmission Date: 20170428
  Serious: Yes (Other)
  Sender: FDA-Public Use
  Company Number: US-PFIZER INC-2017064155

PATIENT
  Age: 56 Year
  Sex: Female

DRUGS (1)
  1. BOSULIF [Suspect]
     Active Substance: BOSUTINIB MONOHYDRATE
     Indication: CHRONIC MYELOID LEUKAEMIA
     Dosage: 500 MG, DAILY
     Route: 048
     Dates: start: 20170206

REACTIONS (6)
  - White blood cell count increased [Unknown]
  - Gait disturbance [Unknown]
  - Vomiting [Unknown]
  - Myalgia [Unknown]
  - Rash vesicular [Unknown]
  - Bone pain [Unknown]

NARRATIVE: CASE EVENT DATE: 20170206
